APPROVED DRUG PRODUCT: AMANTADINE HYDROCHLORIDE
Active Ingredient: AMANTADINE HYDROCHLORIDE
Strength: 100MG
Dosage Form/Route: CAPSULE;ORAL
Application: A077659 | Product #001
Applicant: ACTAVIS ELIZABETH LLC
Approved: Feb 23, 2006 | RLD: No | RS: No | Type: DISCN